FAERS Safety Report 21296788 (Version 1)
Quarter: 2022Q3

REPORT INFORMATION
  Report Type: Spontaneous
  Country: US (occurrence: None)
  Receive Date: 20220903
  Receipt Date: 20220903
  Transmission Date: 20221027
  Serious: Yes (Life-Threatening, Hospitalization)
  Sender: FDA-Public Use
  Company Number: None

PATIENT
  Age: 77 Year
  Sex: Female
  Weight: 73.35 kg

DRUGS (11)
  1. EVUSHELD [Suspect]
     Active Substance: CILGAVIMAB\TIXAGEVIMAB
     Indication: COVID-19 prophylaxis
     Dates: start: 20220728, end: 20220728
  2. CYCLOSPORINE [Concomitant]
     Active Substance: CYCLOSPORINE
  3. AMLODIPINE [Concomitant]
     Active Substance: AMLODIPINE BESYLATE
  4. levothyroxide [Concomitant]
  5. ZOLPIDEM [Concomitant]
     Active Substance: ZOLPIDEM TARTRATE
  6. LACTULOSE [Concomitant]
     Active Substance: LACTULOSE
  7. ventalin inhaler [Concomitant]
  8. PULMICORT TURBUHALER [Concomitant]
     Active Substance: BUDESONIDE
  9. pessary [Concomitant]
  10. Guafeninsin [Concomitant]
  11. vitamins and minerals [Concomitant]

REACTIONS (1)
  - Colitis ischaemic [None]

NARRATIVE: CASE EVENT DATE: 20220812
